FAERS Safety Report 7354503-0 (Version None)
Quarter: 2011Q1

REPORT INFORMATION
  Report Type: 
  Country: None (occurrence: None)
  Receive Date: 20110316
  Receipt Date: 20100916
  Transmission Date: 20110831
  Serious: Yes (Other)
  Sender: FDA-Public Use
  Company Number: US-BAYER-201021133NA

PATIENT
  Sex: Female
  Weight: 65.76 kg

DRUGS (8)
  1. IBUPROFEN [Concomitant]
  2. MOTRIN [Concomitant]
  3. EXCEDRIN (MIGRAINE) [Concomitant]
  4. TYLENOL REGULAR [Concomitant]
  5. LORTAB [Concomitant]
  6. OCELLA [Suspect]
     Route: 048
     Dates: start: 20080801
  7. YAZ [Suspect]
     Indication: MENSTRUAL CYCLE MANAGEMENT
     Dosage: UNK UNK, UNK
     Route: 048
     Dates: start: 20080801, end: 20090901
  8. YASMIN [Suspect]
     Route: 048
     Dates: start: 20080801

REACTIONS (5)
  - CHOLELITHIASIS [None]
  - GALLBLADDER DISORDER [None]
  - MENTAL DISORDER [None]
  - GALLBLADDER CHOLESTEROLOSIS [None]
  - CHOLECYSTITIS CHRONIC [None]
